FAERS Safety Report 11171513 (Version 5)
Quarter: 2015Q3

REPORT INFORMATION
  Report Type: Spontaneous
  Country: US (occurrence: US)
  Receive Date: 20150608
  Receipt Date: 20150925
  Transmission Date: 20151125
  Serious: Yes (Hospitalization)
  Sender: FDA-Public Use
  Company Number: US-B.I. PHARMACEUTICALS,INC./RIDGEFIELD-2015-BI-29496BP

PATIENT
  Age: 46 Year
  Sex: Female
  Weight: 113.4 kg

DRUGS (10)
  1. DUONEB [Concomitant]
     Active Substance: ALBUTEROL SULFATE\IPRATROPIUM BROMIDE
     Indication: BLOOD IMMUNOGLOBULIN E INCREASED
     Route: 055
     Dates: start: 2010
  2. COMBIVENT [Suspect]
     Active Substance: ALBUTEROL SULFATE\IPRATROPIUM BROMIDE
     Indication: ASTHMA
     Dosage: STRENGTH: 20 MCG / 100 MCG, DAILY DOSE:  20 MCG / 100 MCG AS REQUIRED
     Route: 055
     Dates: start: 201401
  3. ALBUTEROL. [Concomitant]
     Active Substance: ALBUTEROL
     Indication: BLOOD IMMUNOGLOBULIN E INCREASED
     Dosage: DAILY DOSE: 1 PUF AS REQUIRED
     Route: 055
     Dates: start: 2010
  4. FLUTICASONE [Concomitant]
     Active Substance: FLUTICASONE\FLUTICASONE PROPIONATE
     Indication: BLOOD IMMUNOGLOBULIN E INCREASED
     Dosage: 100 MCG
     Route: 055
     Dates: start: 2013
  5. FLOVENT [Concomitant]
     Active Substance: FLUTICASONE PROPIONATE
     Indication: BLOOD IMMUNOGLOBULIN E INCREASED
     Dosage: 440 MCG
     Route: 055
     Dates: start: 201110
  6. COMBIVENT [Suspect]
     Active Substance: ALBUTEROL SULFATE\IPRATROPIUM BROMIDE
     Indication: HYPER IGE SYNDROME
  7. ALLEGRA [Concomitant]
     Active Substance: FEXOFENADINE HYDROCHLORIDE
     Indication: BLOOD IMMUNOGLOBULIN E INCREASED
     Dosage: 20 MG
     Route: 048
     Dates: start: 2013
  8. PREDNISONE. [Concomitant]
     Active Substance: PREDNISONE
     Indication: PNEUMONITIS
     Dosage: 40 MG
     Route: 048
     Dates: start: 2009
  9. MONTELUKAST SODIUM. [Concomitant]
     Active Substance: MONTELUKAST SODIUM
     Indication: BLOOD IMMUNOGLOBULIN E INCREASED
     Dosage: 10 MG
     Route: 048
     Dates: start: 2010
  10. AZITHROMYCIN [Concomitant]
     Active Substance: AZITHROMYCIN ANHYDROUS
     Indication: PROPHYLAXIS
     Dosage: 107.1429 MG
     Route: 048
     Dates: start: 2013

REACTIONS (13)
  - Asthma [Not Recovered/Not Resolved]
  - Tachycardia [Recovered/Resolved]
  - Off label use [Unknown]
  - Blood lactic acid increased [Recovered/Resolved]
  - Product quality issue [Unknown]
  - Confusional state [Not Recovered/Not Resolved]
  - Off label use [Unknown]
  - Asthma [Recovered/Resolved]
  - Tremor [Recovered/Resolved]
  - Dyspnoea [Not Recovered/Not Resolved]
  - Asthma [Recovered/Resolved]
  - Mental impairment [Recovered/Resolved]
  - Drug ineffective [Not Recovered/Not Resolved]

NARRATIVE: CASE EVENT DATE: 2014
